FAERS Safety Report 14925478 (Version 1)
Quarter: 2018Q2

REPORT INFORMATION
  Report Type: Report from Study
  Country: US (occurrence: US)
  Receive Date: 20180522
  Receipt Date: 20180522
  Transmission Date: 20180711
  Serious: No
  Sender: FDA-Public Use
  Company Number: PHEH2018US019842

PATIENT
  Sex: Male

DRUGS (1)
  1. GILENYA [Suspect]
     Active Substance: FINGOLIMOD HYDROCHLORIDE
     Indication: MULTIPLE SCLEROSIS
     Dosage: 0.5 MG, QD
     Route: 048
     Dates: start: 20180323

REACTIONS (7)
  - Peroneal nerve palsy [Unknown]
  - Muscle spasms [Unknown]
  - Gait disturbance [Unknown]
  - Hypoaesthesia [Unknown]
  - Bladder disorder [Unknown]
  - Amnesia [Unknown]
  - Abdominal discomfort [Unknown]
